FAERS Safety Report 6102114-7 (Version None)
Quarter: 2009Q1

REPORT INFORMATION
  Report Type: 
  Country: None (occurrence: None)
  Receive Date: 20090304
  Receipt Date: 20090302
  Transmission Date: 20090719
  Serious: Yes (Death)
  Sender: FDA-Public Use
  Company Number: RU-MERCK-0903RUS00001

PATIENT
  Age: 45 Year
  Sex: Female

DRUGS (1)
  1. INVANZ [Suspect]
     Indication: PNEUMONIA
     Route: 042

REACTIONS (1)
  - PNEUMONIA [None]
